FAERS Safety Report 5924932-8 (Version None)
Quarter: 2008Q4

REPORT INFORMATION
  Report Type: 
  Country: None (occurrence: None)
  Receive Date: 20081020
  Receipt Date: 20081020
  Transmission Date: 20090506
  Serious: Yes (Life-Threatening)
  Sender: FDA-Public Use
  Company Number: None

PATIENT
  Age: 81 Year
  Sex: Male

DRUGS (2)
  1. FENTANYL [Suspect]
     Indication: SEDATIVE THERAPY
     Dosage: 100MCG ONCE IV  PRE-PROCEDURE X 1
     Route: 042
  2. MIDAZOLAM HCL [Suspect]
     Indication: SEDATIVE THERAPY
     Dosage: 2MG ONCE IV PRE-PROCEDURE X 1
     Route: 042

REACTIONS (2)
  - ANAESTHETIC COMPLICATION PULMONARY [None]
  - RESPIRATORY ARREST [None]
